FAERS Safety Report 23279929 (Version 1)
Quarter: 2023Q4

REPORT INFORMATION
  Report Type: Report from Study
  Country: US (occurrence: US)
  Receive Date: 20231209
  Receipt Date: 20231209
  Transmission Date: 20240110
  Serious: Yes (Death, Hospitalization, Other)
  Sender: FDA-Public Use
  Company Number: US-UCBSA-2023028313

PATIENT
  Sex: Male

DRUGS (4)
  1. LACOSAMIDE [Suspect]
     Active Substance: LACOSAMIDE
     Indication: Seizure
     Dosage: 150 MILLIGRAM, 2X/DAY (BID)
  2. LACOSAMIDE [Suspect]
     Active Substance: LACOSAMIDE
     Indication: Hypotension
     Dosage: 200 MILLIGRAM, 2X/DAY (BID)
     Dates: end: 20230708
  3. LACOSAMIDE [Suspect]
     Active Substance: LACOSAMIDE
     Indication: Off label use
     Dosage: UNK
  4. MIDODRINE [Concomitant]
     Active Substance: MIDODRINE
     Indication: Hypotension
     Dosage: UNK

REACTIONS (12)
  - Septic shock [Fatal]
  - Abdominal pain upper [Unknown]
  - Gallbladder operation [Unknown]
  - Coma [Recovered/Resolved]
  - End stage renal disease [Unknown]
  - Dialysis [Unknown]
  - Seizure [Unknown]
  - Dementia [Recovered/Resolved]
  - Abnormal behaviour [Recovered/Resolved]
  - Hypotension [Not Recovered/Not Resolved]
  - Hospice care [Unknown]
  - Off label use [Unknown]

NARRATIVE: CASE EVENT DATE: 20230101
